FAERS Safety Report 25444995 (Version 1)
Quarter: 2025Q2

REPORT INFORMATION
  Report Type: Spontaneous
  Country: JP (occurrence: JP)
  Receive Date: 20250617
  Receipt Date: 20250617
  Transmission Date: 20250717
  Serious: Yes (Other)
  Sender: RANBAXY
  Company Number: JP-SUN PHARMACEUTICAL INDUSTRIES INC-2025RR-512254

PATIENT
  Age: 63 Year
  Sex: Male

DRUGS (2)
  1. CARVEDILOL [Suspect]
     Active Substance: CARVEDILOL
     Indication: Clear cell renal cell carcinoma
     Route: 065
  2. CABOZANTINIB [Suspect]
     Active Substance: CABOZANTINIB
     Indication: Clear cell renal cell carcinoma
     Route: 065

REACTIONS (5)
  - Therapeutic product effect incomplete [Recovering/Resolving]
  - Renal impairment [Unknown]
  - Cardiac failure [Unknown]
  - Ejection fraction decreased [Unknown]
  - Drug ineffective [Recovering/Resolving]
